FAERS Safety Report 5390709-8 (Version None)
Quarter: 2007Q3

REPORT INFORMATION
  Report Type: 
  Country: None (occurrence: None)
  Receive Date: 20070716
  Receipt Date: 20070516
  Transmission Date: 20080115
  Serious: Yes (Hospitalization)
  Sender: FDA-Public Use
  Company Number: MPS1-10698

PATIENT
  Age: 9 Year
  Sex: Female
  Weight: 32 kg

DRUGS (11)
  1. ALDURAZYME [Suspect]
     Indication: MUCOPOLYSACCHARIDOSIS IH
     Dosage: 0.58 MG/KG QWK IV
     Route: 042
     Dates: start: 20040901, end: 20070417
  2. SALBUTAMOL [Concomitant]
  3. CYCLOBENZAPRINE HCL [Concomitant]
  4. VOLTAREN [Concomitant]
  5. ACETAMINOPHEN [Concomitant]
  6. AMITRIPTYLINE HCL [Concomitant]
  7. DEXAMPHETAMINE LA [Concomitant]
  8. RANITIDINE [Concomitant]
  9. FLOVENT [Concomitant]
  10. MELATONIN [Concomitant]
  11. DETROL [Concomitant]

REACTIONS (11)
  - BLOOD PRESSURE INCREASED [None]
  - CARDIAC DISORDER [None]
  - CELLULITIS [None]
  - EJECTION FRACTION DECREASED [None]
  - FATIGUE [None]
  - FLUSHING [None]
  - HEART RATE INCREASED [None]
  - INDURATION [None]
  - OEDEMA [None]
  - POSTOPERATIVE WOUND INFECTION [None]
  - RASH [None]
